FAERS Safety Report 23408176 (Version 3)
Quarter: 2024Q1

REPORT INFORMATION
  Report Type: Report from Study
  Country: US (occurrence: US)
  Receive Date: 20240117
  Receipt Date: 20240122
  Transmission Date: 20240410
  Serious: Yes (Hospitalization)
  Sender: FDA-Public Use
  Company Number: US-ABBVIE-5589534

PATIENT
  Age: 25 Year
  Sex: Female
  Weight: 56.699 kg

DRUGS (1)
  1. HUMIRA [Suspect]
     Active Substance: ADALIMUMAB
     Indication: Colitis ulcerative
     Dosage: CITRATE FREE?FORM STRENGTH: 40 MILLIGRAM
     Route: 058
     Dates: start: 201901, end: 201912

REACTIONS (8)
  - Colitis ulcerative [Recovered/Resolved]
  - Joint swelling [Not Recovered/Not Resolved]
  - Feeding disorder [Unknown]
  - Colitis ulcerative [Not Recovered/Not Resolved]
  - Abdominal distension [Not Recovered/Not Resolved]
  - Palpitations [Recovering/Resolving]
  - Vomiting [Not Recovered/Not Resolved]
  - Gastric infection [Recovering/Resolving]

NARRATIVE: CASE EVENT DATE: 20230701
